FAERS Safety Report 24179646 (Version 6)
Quarter: 2025Q3

REPORT INFORMATION
  Report Type: Report from Study
  Country: US (occurrence: US)
  Receive Date: 20240806
  Receipt Date: 20250825
  Transmission Date: 20251021
  Serious: Yes (Hospitalization, Other)
  Sender: TAKEDA
  Company Number: US-TAKEDA-US201706867

PATIENT
  Age: 66 Year
  Sex: Male

DRUGS (6)
  1. VELAGLUCERASE ALFA [Suspect]
     Active Substance: VELAGLUCERASE ALFA
     Indication: Gaucher^s disease
     Dosage: 4000 INTERNATIONAL UNIT, Q2WEEKS
     Dates: start: 20131226
  2. VELAGLUCERASE ALFA [Suspect]
     Active Substance: VELAGLUCERASE ALFA
     Dosage: 4000 INTERNATIONAL UNIT, Q2WEEKS
     Dates: start: 201410
  3. VELAGLUCERASE ALFA [Suspect]
     Active Substance: VELAGLUCERASE ALFA
     Dosage: 6800 INTERNATIONAL UNIT, Q2WEEKS
     Dates: start: 201609
  4. VELAGLUCERASE ALFA [Suspect]
     Active Substance: VELAGLUCERASE ALFA
     Dosage: 6800 INTERNATIONAL UNIT, Q2WEEKS
     Dates: start: 202201
  5. VELAGLUCERASE ALFA [Suspect]
     Active Substance: VELAGLUCERASE ALFA
     Dosage: 6800 INTERNATIONAL UNIT, Q2WEEKS
  6. EPINEPHRINE [Concomitant]
     Active Substance: EPINEPHRINE

REACTIONS (6)
  - Blood pressure increased [Unknown]
  - Neuropathy peripheral [Unknown]
  - Weight decreased [Unknown]
  - Weight increased [Unknown]
  - Product dose omission issue [Unknown]
  - Inappropriate schedule of product administration [Unknown]

NARRATIVE: CASE EVENT DATE: 20220103
